FAERS Safety Report 10702552 (Version 3)
Quarter: 2015Q4

REPORT INFORMATION
  Report Type: Spontaneous
  Country: US (occurrence: US)
  Receive Date: 20150109
  Receipt Date: 20151006
  Transmission Date: 20160304
  Serious: Yes (Other)
  Sender: FDA-Public Use
  Company Number: US-PFIZER INC-2015006462

PATIENT
  Age: 76 Year
  Sex: Male
  Weight: 80.73 kg

DRUGS (2)
  1. SUTENT [Suspect]
     Active Substance: SUNITINIB MALATE
     Dosage: 1 CAPSULE, CYCLIC (DAILY 4 WEEKS ON 2 WEEKS OFF)
     Dates: start: 20140822
  2. SUTENT [Suspect]
     Active Substance: SUNITINIB MALATE
     Indication: NEOPLASM MALIGNANT
     Dosage: 1 CAPSULE, CYCLIC (DAILY 4 WEEKS ON 2 WEEKS OFF)
     Dates: start: 20140822

REACTIONS (1)
  - Renal disorder [Unknown]

NARRATIVE: CASE EVENT DATE: 20140822
